FAERS Safety Report 13597497 (Version 1)
Quarter: 2017Q2

REPORT INFORMATION
  Report Type: Report from Study
  Country: US (occurrence: US)
  Receive Date: 20170531
  Receipt Date: 20170531
  Transmission Date: 20170830
  Serious: Yes (Other)
  Sender: FDA-Public Use
  Company Number: US-TEVA-772377USA

PATIENT
  Age: 21 Year
  Sex: Male

DRUGS (1)
  1. CLARAVIS [Suspect]
     Active Substance: ISOTRETINOIN
     Indication: ACNE
     Dosage: 80 MILLIGRAM DAILY;
     Route: 048
     Dates: start: 201611

REACTIONS (1)
  - Exposure via body fluid [Unknown]

NARRATIVE: CASE EVENT DATE: 201702
